FAERS Safety Report 5298495-7 (Version None)
Quarter: 2007Q2

REPORT INFORMATION
  Report Type: 
  Country: None (occurrence: None)
  Receive Date: 20070416
  Receipt Date: 20070411
  Transmission Date: 20071010
  Serious: Yes (Death, Hospitalization)
  Sender: FDA-Public Use
  Company Number: MX-ABBOTT-07P-107-0361167-00

PATIENT
  Sex: Male
  Weight: 48 kg

DRUGS (8)
  1. KALETRA [Suspect]
     Indication: HIV INFECTION
     Dosage: 400MG/100MG
     Route: 048
     Dates: start: 20070102, end: 20070125
  2. TRIMETROPRIM [Concomitant]
     Indication: PROPHYLAXIS
     Route: 048
     Dates: start: 20061219, end: 20070125
  3. FLUCONAZOLE [Concomitant]
     Indication: PROPHYLAXIS
     Route: 048
     Dates: start: 20061219, end: 20070125
  4. CLINDAMYCIN [Concomitant]
     Indication: TOXOPLASMOSIS
     Route: 042
     Dates: start: 20070116, end: 20070125
  5. PIRIMETAMINE [Concomitant]
     Indication: TOXOPLASMOSIS
     Route: 048
     Dates: start: 20070116, end: 20070125
  6. FOLINIC ACID [Concomitant]
     Indication: TOXOPLASMOSIS
     Route: 048
     Dates: start: 20070116, end: 20070125
  7. METAMIZOL [Concomitant]
     Indication: PYREXIA
     Route: 042
     Dates: start: 20070115, end: 20070125
  8. SULFAMETHOXAZOLE [Concomitant]
     Indication: DRUG USE FOR UNKNOWN INDICATION

REACTIONS (8)
  - DIPLOPIA [None]
  - ESCHERICHIA INFECTION [None]
  - EYELID PTOSIS [None]
  - IIIRD NERVE PARALYSIS [None]
  - LUNG NEOPLASM [None]
  - NAUSEA [None]
  - PNEUMONIA [None]
  - VOMITING [None]
